FAERS Safety Report 9746239 (Version 1)
Quarter: 2013Q4

REPORT INFORMATION
  Report Type: Spontaneous
  Country: US (occurrence: None)
  Receive Date: 20131209
  Receipt Date: 20131209
  Transmission Date: 20140711
  Serious: No
  Sender: FDA-Public Use
  Company Number: None

PATIENT
  Age: 34 Year
  Sex: Female

DRUGS (1)
  1. NUVARING [Suspect]
     Indication: OVARIAN CYST
     Dosage: ONCE EVERY 3 WEEKS?
     Route: 067

REACTIONS (5)
  - Lung disorder [None]
  - Pain [None]
  - Pain in extremity [None]
  - Thrombosis [None]
  - Myalgia [None]
